FAERS Safety Report 16028096 (Version 6)
Quarter: 2022Q1

REPORT INFORMATION
  Report Type: Report from Study
  Country: TR (occurrence: None)
  Receive Date: 20190304
  Receipt Date: 20220317
  Transmission Date: 20220423
  Serious: Yes (Hospitalization)
  Sender: FDA-Public Use
  Company Number: TR-ROCHE-2206897

PATIENT
  Age: 70 Year
  Sex: Female
  Weight: 58 kg

DRUGS (64)
  1. ATEZOLIZUMAB [Suspect]
     Active Substance: ATEZOLIZUMAB
     Indication: Ovarian cancer
     Dosage: DATE OF MOST RECENT DOSE OF ATEZOLIZUMAB PRIOR TO AE ONSET 05/OCT/2018: 1200MG?DATE OF MOST RECENT D
     Route: 042
     Dates: start: 20180911
  2. BEVACIZUMAB [Suspect]
     Active Substance: BEVACIZUMAB
     Indication: Ovarian cancer
     Dosage: DATE OF MOST RECENT DOSE OF BEVACIZUMAB 05/DEC/2018: 900 MG?DATE OF MOST RECENT DOSE OF BEVACIZUMAB
     Route: 042
     Dates: start: 20181005
  3. PACLITAXEL [Suspect]
     Active Substance: PACLITAXEL
     Indication: Ovarian cancer
     Dosage: DOSE OF LAST PACLITAXEL ADMINISTERED PRIOR TO AE ONSET ON 05/OCT/2018: 273 MG?DOSE OF LAST PACLITAXE
     Route: 042
     Dates: start: 20180911
  4. CARBOPLATIN [Suspect]
     Active Substance: CARBOPLATIN
     Indication: Ovarian cancer
     Dosage: DOSE TO ACHIEVE A TARGET AREA UNDER THE CURVE (AUC) OF 6 (MG/ML*MIN) ON DAY 1 OF EACH 21-DAY CYCLE F
     Route: 042
     Dates: start: 20180911
  5. ALOXI [Concomitant]
     Active Substance: PALONOSETRON HYDROCHLORIDE
     Indication: Premedication
     Dates: start: 20181005, end: 20181005
  6. ALOXI [Concomitant]
     Active Substance: PALONOSETRON HYDROCHLORIDE
     Dates: start: 20181115, end: 20181115
  7. BARACLUDE [Concomitant]
     Active Substance: ENTECAVIR
     Indication: Hepatitis B
     Dates: start: 20180908
  8. ACETAMINOPHEN [Concomitant]
     Active Substance: ACETAMINOPHEN
     Indication: Pyrexia
     Dates: start: 20180912, end: 20180914
  9. DUPHALAC [Concomitant]
     Active Substance: LACTULOSE
     Indication: Constipation
     Dates: start: 20180927, end: 20181024
  10. KYTRIL [Concomitant]
     Active Substance: GRANISETRON HYDROCHLORIDE
     Indication: Nausea
     Dosage: RECEIVED ON 05/DEC/2018
     Dates: start: 20180912, end: 20190320
  11. KYTRIL [Concomitant]
     Active Substance: GRANISETRON HYDROCHLORIDE
     Dates: start: 20181025, end: 20181025
  12. KYTRIL [Concomitant]
     Active Substance: GRANISETRON HYDROCHLORIDE
     Dates: start: 20181226, end: 20181226
  13. NEUPOGEN [Concomitant]
     Active Substance: FILGRASTIM
     Indication: Febrile neutropenia
     Dates: start: 20180919, end: 20180920
  14. NEUPOGEN [Concomitant]
     Active Substance: FILGRASTIM
     Dates: start: 20181010, end: 20181012
  15. NEUPOGEN [Concomitant]
     Active Substance: FILGRASTIM
     Dates: start: 20181106, end: 20181107
  16. NEUPOGEN [Concomitant]
     Active Substance: FILGRASTIM
     Dates: start: 20181217, end: 20181219
  17. NEUPOGEN [Concomitant]
     Active Substance: FILGRASTIM
     Dates: start: 20190107, end: 20190108
  18. PERFALGAN [Concomitant]
     Active Substance: ACETAMINOPHEN
     Indication: Lower gastrointestinal haemorrhage
     Dates: start: 20181008, end: 20181008
  19. PERFALGAN [Concomitant]
     Active Substance: ACETAMINOPHEN
     Indication: Hypercalcaemia
     Dates: start: 20181005, end: 20181005
  20. PERFALGAN [Concomitant]
     Active Substance: ACETAMINOPHEN
     Dates: start: 20181025, end: 20181025
  21. PERFALGAN [Concomitant]
     Active Substance: ACETAMINOPHEN
     Dates: start: 20181115, end: 20181115
  22. PERFALGAN [Concomitant]
     Active Substance: ACETAMINOPHEN
     Dates: start: 20181205, end: 20181205
  23. PERFALGAN [Concomitant]
     Active Substance: ACETAMINOPHEN
     Dates: start: 20181226, end: 20181226
  24. PERFALGAN [Concomitant]
     Active Substance: ACETAMINOPHEN
     Dates: start: 20190116, end: 20190116
  25. PERFALGAN [Concomitant]
     Active Substance: ACETAMINOPHEN
     Dates: start: 20190206, end: 20190206
  26. DEKORT [Concomitant]
     Active Substance: DEXAMETHASONE
     Indication: Premedication
     Route: 042
     Dates: start: 20181005, end: 20181005
  27. DEKORT [Concomitant]
     Active Substance: DEXAMETHASONE
     Route: 042
     Dates: start: 20181025, end: 20181025
  28. DEKORT [Concomitant]
     Active Substance: DEXAMETHASONE
     Route: 042
     Dates: start: 20181115, end: 20181115
  29. DEKORT [Concomitant]
     Active Substance: DEXAMETHASONE
     Route: 042
     Dates: start: 20181205, end: 20181205
  30. DEKORT [Concomitant]
     Active Substance: DEXAMETHASONE
     Route: 042
     Dates: start: 20181226, end: 20181226
  31. PHENIRAMINE [Concomitant]
     Active Substance: PHENIRAMINE
     Indication: Premedication
     Dates: start: 20181005, end: 20181005
  32. PHENIRAMINE [Concomitant]
     Active Substance: PHENIRAMINE
     Dates: start: 20181025, end: 20181025
  33. PHENIRAMINE [Concomitant]
     Active Substance: PHENIRAMINE
     Dates: start: 20181115, end: 20181115
  34. PHENIRAMINE [Concomitant]
     Active Substance: PHENIRAMINE
     Dates: start: 20181205, end: 20181205
  35. PHENIRAMINE [Concomitant]
     Active Substance: PHENIRAMINE
     Dates: start: 20181226, end: 20181226
  36. PHENIRAMINE [Concomitant]
     Active Substance: PHENIRAMINE
     Dates: start: 20190524, end: 20190524
  37. RANITIDINE HYDROCHLORIDE [Concomitant]
     Active Substance: RANITIDINE HYDROCHLORIDE
     Indication: Premedication
     Dates: start: 20181005, end: 20181005
  38. RANITIDINE HYDROCHLORIDE [Concomitant]
     Active Substance: RANITIDINE HYDROCHLORIDE
     Dates: start: 20181025, end: 20181025
  39. RANITIDINE HYDROCHLORIDE [Concomitant]
     Active Substance: RANITIDINE HYDROCHLORIDE
     Dates: start: 20181115, end: 20181115
  40. RANITIDINE HYDROCHLORIDE [Concomitant]
     Active Substance: RANITIDINE HYDROCHLORIDE
     Dates: start: 20181205, end: 20181205
  41. RANITIDINE HYDROCHLORIDE [Concomitant]
     Active Substance: RANITIDINE HYDROCHLORIDE
     Dates: start: 20181226, end: 20181226
  42. RANITIDINE HYDROCHLORIDE [Concomitant]
     Active Substance: RANITIDINE HYDROCHLORIDE
     Dates: start: 20190524, end: 20190524
  43. ZOMETA [Concomitant]
     Active Substance: ZOLEDRONIC ACID
     Indication: Hypercalcaemia
     Dates: start: 20181005, end: 20181005
  44. ZOMETA [Concomitant]
     Active Substance: ZOLEDRONIC ACID
     Dates: start: 20181025, end: 20181025
  45. ZOMETA [Concomitant]
     Active Substance: ZOLEDRONIC ACID
     Dates: start: 20181115, end: 20181115
  46. ZOMETA [Concomitant]
     Active Substance: ZOLEDRONIC ACID
     Dates: start: 20181205, end: 20181205
  47. ZOMETA [Concomitant]
     Active Substance: ZOLEDRONIC ACID
     Dates: start: 20181226, end: 20181226
  48. ZOMETA [Concomitant]
     Active Substance: ZOLEDRONIC ACID
     Dates: start: 20190116, end: 20190116
  49. ZOMETA [Concomitant]
     Active Substance: ZOLEDRONIC ACID
     Dates: start: 20190206, end: 20190206
  50. KALINOR [Concomitant]
     Indication: Hypokalaemia
     Dates: start: 20190320, end: 20190411
  51. LYRICA [Concomitant]
     Active Substance: PREGABALIN
     Dates: start: 20190426
  52. AMOKLAVIN [Concomitant]
     Indication: Infection
     Dates: start: 20190524, end: 20190531
  53. BEMIKS [Concomitant]
     Dates: start: 20190524, end: 20190524
  54. REDOX-C [Concomitant]
     Dates: start: 20190524, end: 20190524
  55. NYSTATIN [Concomitant]
     Active Substance: NYSTATIN
     Indication: Infection
     Dates: start: 20190521, end: 20190531
  56. NYSTATIN [Concomitant]
     Active Substance: NYSTATIN
     Indication: Stomatitis
     Dates: start: 20190621, end: 20190712
  57. VALTREX [Concomitant]
     Active Substance: VALACYCLOVIR HYDROCHLORIDE
     Indication: Herpes zoster
     Dates: start: 20190802, end: 20190829
  58. CYANOCOBALAMIN\PYRIDOXINE\THIAMINE [Concomitant]
     Active Substance: CYANOCOBALAMIN\PYRIDOXINE\THIAMINE
     Indication: Herpes zoster
     Dates: start: 20190805, end: 20190829
  59. BACODERM [Concomitant]
     Indication: Herpes zoster
     Dates: start: 20190802, end: 20190829
  60. GEMZAR [Concomitant]
     Active Substance: GEMCITABINE HYDROCHLORIDE
     Indication: Neoplasm malignant
     Dates: start: 20190927
  61. GEMZAR [Concomitant]
     Active Substance: GEMCITABINE HYDROCHLORIDE
     Dates: start: 20190927
  62. CISPLATIN [Concomitant]
     Active Substance: CISPLATIN
     Indication: Neoplasm malignant
     Dates: start: 20190927
  63. DOXORUBICIN HYDROCHLORIDE [Concomitant]
     Active Substance: DOXORUBICIN HYDROCHLORIDE
     Indication: Neoplasm malignant
     Dates: start: 20190927
  64. DOXORUBICIN HYDROCHLORIDE [Concomitant]
     Active Substance: DOXORUBICIN HYDROCHLORIDE
     Dates: start: 20190927

REACTIONS (2)
  - Hyperparathyroidism [Recovered/Resolved]
  - Hypertension [Recovering/Resolving]

NARRATIVE: CASE EVENT DATE: 20181014
